FAERS Safety Report 9014517 (Version 3)
Quarter: 2013Q3

REPORT INFORMATION
  Report Type: Report from Study
  Country: US (occurrence: US)
  Receive Date: 20130115
  Receipt Date: 20130731
  Transmission Date: 20140515
  Serious: Yes (Other)
  Sender: FDA-Public Use
  Company Number: US-JNJFOC-20130103133

PATIENT
  Age: 29 Year
  Sex: Female

DRUGS (1)
  1. NUCYNTA ER [Suspect]
     Indication: PRODUCT USED FOR UNKNOWN INDICATION
     Dosage: 27 DOSES
     Route: 048

REACTIONS (9)
  - Intentional overdose [Unknown]
  - Toxicity to various agents [Unknown]
  - Tachycardia [Unknown]
  - Heat stroke [Unknown]
  - Sinus tachycardia [Unknown]
  - Hallucination [Unknown]
  - Delirium [Unknown]
  - Agitation [Unknown]
  - Confusional state [Unknown]
